FAERS Safety Report 17393602 (Version 2)
Quarter: 2020Q2

REPORT INFORMATION
  Report Type: Report from Study
  Country: BR (occurrence: BR)
  Receive Date: 20200208
  Receipt Date: 20200504
  Transmission Date: 20200713
  Serious: Yes (Other)
  Sender: FDA-Public Use
  Company Number: NVSC2020BR032840

PATIENT
  Sex: Male

DRUGS (3)
  1. ISONIAZID. [Concomitant]
     Active Substance: ISONIAZID
     Indication: PRODUCT USED FOR UNKNOWN INDICATION
     Dosage: UNK
     Route: 065
  2. COSENTYX [Suspect]
     Active Substance: SECUKINUMAB
     Indication: PSORIASIS
     Dosage: UNK
     Route: 065
     Dates: start: 20200120
  3. COSENTYX [Suspect]
     Active Substance: SECUKINUMAB
     Dosage: UNK (THIRD DOSE)
     Route: 065
     Dates: start: 20200204

REACTIONS (1)
  - Tuberculosis [Unknown]
